FAERS Safety Report 13647179 (Version 1)
Quarter: 2017Q2

REPORT INFORMATION
  Report Type: Spontaneous
  Country: US (occurrence: US)
  Receive Date: 20170613
  Receipt Date: 20170613
  Transmission Date: 20170830
  Serious: No
  Sender: FDA-Public Use
  Company Number: US-BAYER-2017-110992

PATIENT
  Age: 75 Year
  Sex: Female
  Weight: 82 kg

DRUGS (1)
  1. MIRALAX [Suspect]
     Active Substance: POLYETHYLENE GLYCOL 3350
     Indication: GASTROINTESTINAL DISORDER
     Dosage: 1 DF, QD
     Route: 048
     Dates: start: 20170604

REACTIONS (4)
  - Incorrect drug administration duration [Unknown]
  - Blood glucose increased [Not Recovered/Not Resolved]
  - Drug prescribing error [Unknown]
  - Expired product administered [Unknown]

NARRATIVE: CASE EVENT DATE: 20170604
